FAERS Safety Report 22012574 (Version 5)
Quarter: 2024Q4

REPORT INFORMATION
  Report Type: Spontaneous
  Country: US (occurrence: US)
  Receive Date: 20230220
  Receipt Date: 20241223
  Transmission Date: 20250114
  Serious: Yes (Other)
  Sender: PFIZER
  Company Number: US-PFIZER INC-PV202300031950

PATIENT
  Age: 60 Year
  Sex: Female
  Weight: 114.47 kg

DRUGS (14)
  1. XELJANZ XR [Suspect]
     Active Substance: TOFACITINIB CITRATE
     Indication: Rheumatoid arthritis
     Dosage: 11MG QD (ONCE A DAY)/TAKE 1 TABLET BY MOUTH EVERYDAY AS DIRECTED BY PHYSICIAN
     Dates: start: 20231122
  2. PREDNISONE [Concomitant]
     Active Substance: PREDNISONE
     Dosage: TAKE ONE TABLET BY MOUTH EVERY DAY
     Route: 048
     Dates: start: 20220606, end: 20240904
  3. PREDNISONE [Concomitant]
     Active Substance: PREDNISONE
     Dosage: 5MG QD (ONCE A DAY) PRN (AS NEEDED)
  4. ASPIRIN [Concomitant]
     Active Substance: ASPIRIN
     Dosage: TAKE 1 TABLET BY ORAL ROUTE EVERY DAY
     Route: 048
     Dates: start: 20150624
  5. METFORMIN HYDROCHLORIDE [Concomitant]
     Active Substance: METFORMIN HYDROCHLORIDE
     Dosage: TAKE 2 BY ORAL ROUTE EVERY DAY
     Route: 048
     Dates: start: 20150624
  6. GLUCOSAMINE [Concomitant]
     Active Substance: GLUCOSAMINE
     Dosage: TAKE 1 BY ORAL ROUTE ONCE
     Route: 048
     Dates: start: 20150624
  7. RHINOCORT AQUA [Concomitant]
     Active Substance: BUDESONIDE
     Dosage: SPRAY 1 SPRAY BY INTRANASAL ROUTE EVERY DAY IN EACH NOSTRIL
     Route: 045
     Dates: start: 20160323
  8. ATORVASTATIN [Concomitant]
     Active Substance: ATORVASTATIN
     Dosage: TAKE 1 TABLET BY ORAL ROUTE EVERYDAY
     Route: 048
     Dates: start: 20170920
  9. LISINOPRIL [Concomitant]
     Active Substance: LISINOPRIL
     Dosage: TAKE 0.5 MG TABLET BY ORAL ROUTE EVERY DAY
     Route: 048
     Dates: start: 20190821
  10. CARVEDILOL [Concomitant]
     Active Substance: CARVEDILOL
     Dosage: TAKE 0.5 TABLET BY ORAL ROUTE 2 TIMES EVERY DAY WITH FOOD
     Route: 048
     Dates: start: 20200219
  11. GABAPENTIN [Concomitant]
     Active Substance: GABAPENTIN
     Dosage: TAKE 1 - 2 CAPSULE BY ORAL ROUTE EVERY BEDTIME
     Route: 048
     Dates: start: 20200819
  12. FISH OIL [Concomitant]
     Active Substance: FISH OIL
     Dosage: TAKE 1 CAPSULE BY ORAL ROUTE EVERY DAY
     Route: 048
     Dates: start: 20220302
  13. IBUPROFEN [Concomitant]
     Active Substance: IBUPROFEN
     Dosage: TAKE 2 CAPSULE BY ORAL ROUTE EVERY 8 HOURS AS NEEDED
     Route: 048
     Dates: start: 20220907
  14. MECLIZINE [Concomitant]
     Active Substance: MECLIZINE HYDROCHLORIDE
     Dosage: TAKE 1 TABLET BY ORAL ROUTE 2 TIMES EVERY DAY AS NEEDED
     Route: 048
     Dates: start: 20230308

REACTIONS (2)
  - Urinary cystectomy [Unknown]
  - Paraesthesia [Unknown]
